FAERS Safety Report 17460761 (Version 1)
Quarter: 2020Q1

REPORT INFORMATION
  Report Type: Spontaneous
  Country: US (occurrence: US)
  Receive Date: 20200213
  Receipt Date: 20200213
  Transmission Date: 20200409
  Serious: Yes (Hospitalization)
  Sender: FDA-Public Use
  Company Number: None

PATIENT
  Age: 63 Year
  Sex: Female

DRUGS (2)
  1. ORENCIA [Suspect]
     Active Substance: ABATACEPT
     Indication: FIBROMYALGIA
     Dosage: 125 MG/ML SYR 1X/WEEKLY INJECTION (4=4)
     Dates: start: 20160128
  2. ORENCIA [Suspect]
     Active Substance: ABATACEPT
     Indication: RHEUMATOID ARTHRITIS
     Dosage: 125 MG/ML SYR 1X/WEEKLY INJECTION (4=4)
     Dates: start: 20160128

REACTIONS (3)
  - Blood pressure abnormal [None]
  - Procedural pain [None]
  - Hypersensitivity [None]
